FAERS Safety Report 10189007 (Version 3)
Quarter: 2014Q2

REPORT INFORMATION
  Report Type: Spontaneous
  Country: US (occurrence: US)
  Receive Date: 20140522
  Receipt Date: 20140605
  Transmission Date: 20141212
  Serious: Yes (Death, Life-Threatening, Hospitalization)
  Sender: FDA-Public Use
  Company Number: US-ACTELION-A-US2014-96981

PATIENT
  Age: 65 Year
  Sex: Female

DRUGS (5)
  1. TRACLEER [Suspect]
     Indication: PULMONARY ARTERIAL HYPERTENSION
     Dosage: 62.5 MG, BID
     Route: 048
     Dates: start: 20140106, end: 20140228
  2. REVATIO [Concomitant]
  3. ADCIRCA [Concomitant]
     Dosage: 40 UNK, UNK
  4. NORVASC [Concomitant]
     Dosage: 10 UNK, UNK
  5. BUMEX [Concomitant]
     Dosage: 6 UNK, BID

REACTIONS (7)
  - Right ventricular failure [Fatal]
  - Pulmonary arterial hypertension [Fatal]
  - Erythema multiforme [Fatal]
  - Septic shock [Fatal]
  - Disease progression [Unknown]
  - Fluid retention [Unknown]
  - Condition aggravated [Unknown]
